FAERS Safety Report 5341413-3 (Version None)
Quarter: 2007Q2

REPORT INFORMATION
  Report Type: 
  Country: None (occurrence: None)
  Receive Date: 20070404
  Receipt Date: 20061016
  Transmission Date: 20071010
  Serious: Yes (Other)
  Sender: FDA-Public Use
  Company Number: 2006125856

PATIENT

DRUGS (1)
  1. GEODON [Suspect]
     Dosage: 160 MEQ (80 MG,2 IN 1 D)

REACTIONS (1)
  - TARDIVE DYSKINESIA [None]
